FAERS Safety Report 6873890-0 (Version None)
Quarter: 2010Q3

REPORT INFORMATION
  Report Type: 
  Country: None (occurrence: None)
  Receive Date: 20100723
  Receipt Date: 20090506
  Transmission Date: 20110219
  Serious: No
  Sender: FDA-Public Use
  Company Number: US-PFIZER INC-2009175090

PATIENT
  Sex: Female

DRUGS (1)
  1. CHANTIX [Suspect]
     Dosage: 0.5 MG, 1X/DAY

REACTIONS (3)
  - DRUG INTOLERANCE [None]
  - MALAISE [None]
  - VOMITING [None]
